FAERS Safety Report 9850129 (Version 1)
Quarter: 2013Q4

REPORT INFORMATION
  Report Type: Spontaneous
  Country: US (occurrence: None)
  Receive Date: 20131226
  Receipt Date: 20131226
  Transmission Date: 20140711
  Serious: Yes (Hospitalization)
  Sender: FDA-Public Use
  Company Number: PHEH2012US025805

PATIENT
  Sex: Male

DRUGS (2)
  1. SANDOSTATIN [Suspect]
     Indication: NEUROENDOCRINE TUMOUR
     Dosage: 100UG, UKN
  2. AFINITOR (EVERLIMUS) [Concomitant]

REACTIONS (3)
  - Nausea [None]
  - Vomiting [None]
  - Constipation [None]
